FAERS Safety Report 21432708 (Version 1)
Quarter: 2022Q4

REPORT INFORMATION
  Report Type: Spontaneous
  Country: US (occurrence: US)
  Receive Date: 20221010
  Receipt Date: 20221010
  Transmission Date: 20230113
  Serious: Yes (Other)
  Sender: FDA-Public Use
  Company Number: US-drreddys-SPO/USA/22/0155381

PATIENT
  Age: 61 Year
  Sex: Female

DRUGS (9)
  1. OLANZAPINE [Suspect]
     Active Substance: OLANZAPINE
     Indication: Psychotic disorder
     Dosage: SLOWLY TITRATED EVERY 2 TO 4 WEEKS
     Route: 048
  2. OLANZAPINE [Suspect]
     Active Substance: OLANZAPINE
  3. HYDROXYZINE HYDROCHLORIDE [Concomitant]
     Active Substance: HYDROXYZINE HYDROCHLORIDE
     Indication: Anxiety
     Dosage: 3 TIMES DAILY AS NEEDED
  4. DULOXETINE [Concomitant]
     Active Substance: DULOXETINE
     Indication: Pain
     Dosage: TITRATED DOSE
  5. DICLOFENAC [Concomitant]
     Active Substance: DICLOFENAC
     Indication: Pain
  6. SERTRALINE [Concomitant]
     Active Substance: SERTRALINE HYDROCHLORIDE
     Indication: Psychotic disorder
     Dosage: TITRATED OVER THE NEXT 2 MONTHS
  7. SERTRALINE [Concomitant]
     Active Substance: SERTRALINE HYDROCHLORIDE
     Dosage: TITRATED DOSE
  8. SERTRALINE [Concomitant]
     Active Substance: SERTRALINE HYDROCHLORIDE
  9. GABAPENTIN [Concomitant]
     Active Substance: GABAPENTIN
     Indication: Product used for unknown indication
     Dosage: UP TO 900 MG/D

REACTIONS (3)
  - Hallucination, visual [Unknown]
  - Increased appetite [Unknown]
  - Weight increased [Unknown]
